FAERS Safety Report 7404809-1 (Version None)
Quarter: 2011Q2

REPORT INFORMATION
  Report Type: 
  Country: None (occurrence: None)
  Receive Date: 20110411
  Receipt Date: 20101109
  Transmission Date: 20111010
  Serious: Yes (Hospitalization)
  Sender: FDA-Public Use
  Company Number: US-BAYER-201035606NA

PATIENT
  Age: 24 Year
  Sex: Female
  Weight: 129.25 kg

DRUGS (5)
  1. YAZ [Suspect]
     Indication: ACNE
  2. YASMIN [Suspect]
     Indication: ACNE
     Dosage: UNK
     Dates: start: 20050801
  3. YASMIN [Suspect]
     Indication: MENSTRUATION IRREGULAR
  4. ACETAMINOPHEN W/ CODEINE [Concomitant]
     Dosage: UNK
     Dates: start: 20050507
  5. OCELLA [Suspect]
     Indication: ACNE

REACTIONS (2)
  - PULMONARY EMBOLISM [None]
  - PAIN [None]
